FAERS Safety Report 5477865-8 (Version None)
Quarter: 2007Q4

REPORT INFORMATION
  Report Type: 
  Country: None (occurrence: None)
  Receive Date: 20071004
  Receipt Date: 20070904
  Transmission Date: 20080405
  Serious: No
  Sender: FDA-Public Use
  Company Number: US-BOEHRINGER INGELHEIM PHARMACEUTICALS, INC.-2007-BP-22116BP

PATIENT

DRUGS (1)
  1. MIRAPEX [Suspect]
     Indication: TOURETTE'S DISORDER
     Route: 048

REACTIONS (2)
  - DRUG INEFFECTIVE [None]
  - TIC [None]
